FAERS Safety Report 14262620 (Version 2)
Quarter: 2018Q1

REPORT INFORMATION
  Report Type: Spontaneous
  Country: PT (occurrence: DE)
  Receive Date: 20171208
  Receipt Date: 20180220
  Transmission Date: 20180508
  Serious: Yes (Other)
  Sender: FDA-Public Use
  Company Number: PT-SUNOVION-2017SUN005239

PATIENT

DRUGS (7)
  1. TRETINOIN. [Concomitant]
     Active Substance: TRETINOIN
     Dosage: UNK
  2. APIDRA [Concomitant]
     Active Substance: INSULIN GLULISINE
     Dosage: UNK
  3. ZEBINIX [Suspect]
     Active Substance: ESLICARBAZEPINE ACETATE
     Dosage: UNK
     Route: 048
  4. ZEBINIX [Suspect]
     Active Substance: ESLICARBAZEPINE ACETATE
     Indication: PRODUCT USED FOR UNKNOWN INDICATION
     Dosage: 600 MG, QD
     Route: 048
  5. APYDAN [Concomitant]
     Active Substance: OXCARBAZEPINE
     Dosage: 600 MG, BID
  6. LAXOFALK [Concomitant]
     Dosage: UNK
  7. ALL OTHER THERAPEUTIC PRODUCTS [Concomitant]
     Active Substance: UNSPECIFIED INGREDIENT
     Dosage: UNK

REACTIONS (3)
  - Leukopenia [Unknown]
  - Prothrombin time prolonged [Recovered/Resolved]
  - Labelled drug-drug interaction medication error [Unknown]
